FAERS Safety Report 6166750-4 (Version None)
Quarter: 2009Q2

REPORT INFORMATION
  Report Type: 
  Country: None (occurrence: None)
  Receive Date: 20090424
  Receipt Date: 20090424
  Transmission Date: 20091009
  Serious: Yes (Other)
  Sender: FDA-Public Use
  Company Number: US-PFIZER INC-2009168558

PATIENT
  Age: 65 Year
  Sex: Male

DRUGS (7)
  1. VIAGRA [Suspect]
     Indication: ERECTILE DYSFUNCTION
     Dosage: 50 MG, AS NEEDED
     Route: 048
  2. ALDARA [Suspect]
     Indication: ANOGENITAL WARTS
     Dosage: 5 X WEEK
     Route: 061
     Dates: start: 20080301
  3. LEVULAN [Suspect]
     Indication: ANOGENITAL WARTS
     Dosage: 1 DOSE, MONTHLY
  4. ATENOLOL [Concomitant]
     Dosage: UNK
  5. BENICAR [Concomitant]
     Dosage: UNK
  6. TYLENOL [Concomitant]
     Dosage: UNK
  7. XALATAN [Concomitant]
     Dosage: UNK

REACTIONS (3)
  - ANOGENITAL WARTS [None]
  - HYPOAESTHESIA [None]
  - PARAESTHESIA [None]
